FAERS Safety Report 13937204 (Version 1)
Quarter: 2017Q3

REPORT INFORMATION
  Report Type: Spontaneous
  Country: US (occurrence: US)
  Receive Date: 20170905
  Receipt Date: 20170905
  Transmission Date: 20171127
  Serious: No
  Sender: FDA-Public Use
  Company Number: US-PFIZER INC-2017378063

PATIENT
  Age: 31 Year
  Sex: Male
  Weight: 99.79 kg

DRUGS (1)
  1. ADVIL [Suspect]
     Active Substance: IBUPROFEN
     Indication: HEADACHE
     Dosage: UNK
     Dates: start: 201708

REACTIONS (5)
  - Dysphagia [Unknown]
  - Product use complaint [Unknown]
  - Bowel movement irregularity [Unknown]
  - Wrong drug administered [Unknown]
  - Abdominal pain lower [Not Recovered/Not Resolved]

NARRATIVE: CASE EVENT DATE: 201708
